FAERS Safety Report 24614202 (Version 1)
Quarter: 2024Q4

REPORT INFORMATION
  Report Type: Spontaneous
  Country: GB (occurrence: GB)
  Receive Date: 20241113
  Receipt Date: 20241113
  Transmission Date: 20250115
  Serious: Yes (Hospitalization, Other)
  Sender: AUROBINDO
  Company Number: GB-MHRA-TPP43744089C10417361YC1730202702719

PATIENT
  Age: 33 Year
  Sex: Male
  Weight: 83 kg

DRUGS (3)
  1. IBUPROFEN [Suspect]
     Active Substance: IBUPROFEN
     Indication: Ill-defined disorder
     Dosage: 200 MILLIGRAM
     Route: 065
  2. VENTOLIN [Concomitant]
     Active Substance: ALBUTEROL SULFATE
     Indication: Ill-defined disorder
     Dosage: UNK UNK, AS NECESSARY, ~INHALE 1-2 DOSES AS NEEDED UP TO FOUR TIMES DAILY
     Dates: start: 20240111
  3. BECLOMETHASONE\FORMOTEROL [Concomitant]
     Active Substance: BECLOMETHASONE\FORMOTEROL
     Indication: Ill-defined disorder
     Dosage: 1 DOSAGE FORM, EVERY OTHER DAY
     Dates: start: 20240403

REACTIONS (3)
  - Asthma [Recovered/Resolved]
  - Wheezing [Unknown]
  - Dyspnoea [Unknown]

NARRATIVE: CASE EVENT DATE: 20241029
